FAERS Safety Report 21611771 (Version 1)
Quarter: 2022Q4

REPORT INFORMATION
  Report Type: Spontaneous
  Country: CN (occurrence: CN)
  Receive Date: 20221117
  Receipt Date: 20221117
  Transmission Date: 20230113
  Serious: Yes (Other)
  Sender: FDA-Public Use
  Company Number: CN-MSNLABS-2022MSNLIT01390

PATIENT

DRUGS (3)
  1. CAPECITABINE [Suspect]
     Active Substance: CAPECITABINE
     Indication: Triple negative breast cancer
     Dosage: (DAY 1, 21 DAYS PER CYCLE)
     Route: 065
     Dates: start: 202009
  2. DOCETAXEL [Suspect]
     Active Substance: DOCETAXEL
     Indication: Triple negative breast cancer
     Dosage: (DAY 1, 21 DAYS PER CYCLE)
     Route: 065
     Dates: start: 202008
  3. DOCETAXEL [Suspect]
     Active Substance: DOCETAXEL
     Dosage: (DAY 1, 21 DAYS PER CYCLE)
     Route: 065
     Dates: start: 202009

REACTIONS (1)
  - Drug ineffective [Unknown]
